FAERS Safety Report 4876257-X (Version None)
Quarter: 2005Q4

REPORT INFORMATION
  Report Type: 
  Country: None (occurrence: None)
  Receive Date: 20051206
  Receipt Date: 20050810
  Transmission Date: 20060501
  Serious: No
  Sender: FDA-Public Use
  Company Number: USA0508105197

PATIENT
  Sex: Male

DRUGS (6)
  1. CYMBALTA [Suspect]
     Dosage: 60 MG
     Dates: start: 20050720, end: 20050809
  2. ACTOS [Concomitant]
  3. NEXIUM [Concomitant]
  4. ALLEGRA [Concomitant]
  5. ALTACE [Concomitant]
  6. MS CONTIN [Concomitant]

REACTIONS (7)
  - CONSTIPATION [None]
  - FEELING ABNORMAL [None]
  - HYPERHIDROSIS [None]
  - INSOMNIA [None]
  - NIGHT SWEATS [None]
  - RESTLESSNESS [None]
  - TINNITUS [None]
